FAERS Safety Report 10501439 (Version 1)
Quarter: 2014Q4

REPORT INFORMATION
  Report Type: Spontaneous
  Country: US (occurrence: US)
  Receive Date: 20141007
  Receipt Date: 20141007
  Transmission Date: 20150528
  Serious: Yes (Hospitalization)
  Sender: FDA-Public Use
  Company Number: US-INCYTE CORPORATION-2014IN002832

PATIENT
  Age: 68 Year
  Sex: Male

DRUGS (6)
  1. JAKAFI [Suspect]
     Active Substance: RUXOLITINIB
     Dosage: 5 MG, BID
     Route: 048
     Dates: start: 20140925
  2. CIALIS [Concomitant]
     Active Substance: TADALAFIL
  3. JAKAFI [Suspect]
     Active Substance: RUXOLITINIB
     Dosage: 5 MG, BID
     Route: 048
     Dates: start: 20140423, end: 20140921
  4. ATENOLOL. [Concomitant]
     Active Substance: ATENOLOL
  5. VESICARE [Concomitant]
     Active Substance: SOLIFENACIN SUCCINATE
  6. PERCOCET [Concomitant]
     Active Substance: ACETAMINOPHEN\OXYCODONE HYDROCHLORIDE

REACTIONS (2)
  - Neoplasm malignant [Unknown]
  - Renal disorder [Unknown]

NARRATIVE: CASE EVENT DATE: 20140921
